FAERS Safety Report 7693846-8 (Version None)
Quarter: 2011Q3

REPORT INFORMATION
  Report Type: 
  Country: None (occurrence: None)
  Receive Date: 20110819
  Receipt Date: 20110809
  Transmission Date: 20111222
  Serious: Yes (Other)
  Sender: FDA-Public Use
  Company Number: US-PFIZER INC-2011163890

PATIENT
  Sex: Female

DRUGS (16)
  1. PRISTIQ [Suspect]
     Indication: DEPRESSION
     Dosage: 50 MG DAILY
     Route: 048
  2. ACTONEL [Concomitant]
     Dosage: 150 MG, MONTHLY
  3. AMBIEN [Concomitant]
     Dosage: UNK
  4. PANTOPRAZOLE [Concomitant]
     Dosage: UNK
  5. ASPIRIN [Concomitant]
     Dosage: UNK
  6. MELATONIN [Concomitant]
     Dosage: UNK
  7. MOBIC [Concomitant]
     Dosage: UNK
  8. INSULIN [Concomitant]
     Dosage: UNK
  9. MULTI-VITAMINS [Concomitant]
     Dosage: UNK
  10. PENICILLIN VK [Concomitant]
     Dosage: UNK
  11. CYMBALTA [Concomitant]
     Dosage: UNK
  12. FLEXERIL [Concomitant]
     Dosage: UNK
  13. TRICOR [Concomitant]
     Dosage: UNK
  14. ALPRAZOLAM [Concomitant]
     Dosage: UNK
  15. ACETAMINOPHEN AND HYDROCODONE BITARTRATE [Concomitant]
     Dosage: UNK
  16. MORPHINE [Concomitant]
     Dosage: UNK

REACTIONS (1)
  - SWELLING FACE [None]
